FAERS Safety Report 4308151-7 (Version None)
Quarter: 2004Q1

REPORT INFORMATION
  Report Type: 
  Country: None (occurrence: None)
  Receive Date: 20040301
  Receipt Date: 20030624
  Transmission Date: 20041129
  Serious: No
  Sender: FDA-Public Use
  Company Number: US-BRISTOL-MYERS SQUIBB COMPANY-12309498

PATIENT
  Age: 72 Year
  Sex: Female

DRUGS (2)
  1. METFORMIN HCL [Suspect]
  2. AVANDIA [Suspect]

REACTIONS (2)
  - ABDOMINAL PAIN [None]
  - NAUSEA [None]
